FAERS Safety Report 10179576 (Version 1)
Quarter: 2014Q2

REPORT INFORMATION
  Report Type: Spontaneous
  Country: US (occurrence: US)
  Receive Date: 20140519
  Receipt Date: 20140519
  Transmission Date: 20141212
  Serious: Yes (Other)
  Sender: FDA-Public Use
  Company Number: US-GILEAD-2014-0102409

PATIENT
  Age: 79 Year
  Sex: Female

DRUGS (2)
  1. RANEXA [Suspect]
     Indication: PRODUCT USED FOR UNKNOWN INDICATION
     Dosage: 500 MG, BID
     Route: 065
  2. IMDUR [Concomitant]

REACTIONS (3)
  - Cardiac failure [Unknown]
  - Hypotension [Unknown]
  - Atrioventricular block [Unknown]
